FAERS Safety Report 6872550-X (Version None)
Quarter: 2010Q3

REPORT INFORMATION
  Report Type: 
  Country: None (occurrence: None)
  Receive Date: 20100723
  Receipt Date: 20090127
  Transmission Date: 20110219
  Serious: No
  Sender: FDA-Public Use
  Company Number: US-PFIZER INC-2008080140

PATIENT
  Sex: Male
  Weight: 145.5 kg

DRUGS (5)
  1. CHANTIX [Suspect]
     Indication: SMOKING CESSATION THERAPY
     Dates: start: 20070901
  2. IBUPROFEN [Concomitant]
  3. BUPROPION [Concomitant]
  4. ALL OTHER THERAPEUTIC PRODUCTS [Concomitant]
  5. PALIPERIDONE [Concomitant]

REACTIONS (3)
  - HEART RATE IRREGULAR [None]
  - MUSCLE SPASMS [None]
  - THERAPEUTIC RESPONSE DECREASED [None]
